FAERS Safety Report 8236709-1 (Version None)
Quarter: 2012Q1

REPORT INFORMATION
  Report Type: 
  Country: None (occurrence: None)
  Receive Date: 20120323
  Receipt Date: 20120315
  Transmission Date: 20120608
  Serious: Yes (Disabling)
  Sender: FDA-Public Use
  Company Number: GER/UKI/12/0023203

PATIENT
  Age: 91 Year
  Sex: Male
  Weight: 65 kg

DRUGS (8)
  1. AMLODIPINE [Concomitant]
  2. LANSOPRAZOLE [Concomitant]
  3. LISINOPRIL [Concomitant]
  4. MACROGOL (MACROGOL) [Concomitant]
  5. ACETAMINOPHEN W/ CODEINE [Concomitant]
  6. DONEPEZIL HCL [Suspect]
     Indication: PRODUCT USED FOR UNKNOWN INDICATION
     Dosage: ORAL
     Route: 048
  7. TRIMETHOPRIM [Concomitant]
  8. ASPIRIN [Concomitant]

REACTIONS (3)
  - PARKINSONISM [None]
  - URINARY INCONTINENCE [None]
  - EXTRAPYRAMIDAL DISORDER [None]
